FAERS Safety Report 9004494 (Version 1)
Quarter: 2013Q1

REPORT INFORMATION
  Report Type: Spontaneous
  Country: US (occurrence: None)
  Receive Date: 20130103
  Receipt Date: 20130103
  Transmission Date: 20140127
  Serious: Yes (Other)
  Sender: FDA-Public Use
  Company Number: None

PATIENT
  Sex: Male
  Weight: 101.61 kg

DRUGS (7)
  1. TREANDA [Suspect]
     Indication: CHRONIC LYMPHOCYTIC LEUKAEMIA
     Dosage: 130 MG DAY 1 + 2 IV DRIP
     Route: 041
     Dates: start: 20121030, end: 20121031
  2. TREANDA [Suspect]
     Indication: CHRONIC LYMPHOCYTIC LEUKAEMIA
     Dosage: 130 MG DAY 1 + 2 IV DRIP
     Route: 041
     Dates: start: 20121030, end: 20121031
  3. DILTIAZEM [Concomitant]
  4. ESOMEPRAZOLE [Concomitant]
  5. HYDROCHLOROTHIAZIDE [Concomitant]
  6. PREDNISONE [Concomitant]
  7. BABY ASPIRIN [Concomitant]

REACTIONS (2)
  - Haemolytic anaemia [None]
  - Condition aggravated [None]
